FAERS Safety Report 6815043-8 (Version None)
Quarter: 2010Q2

REPORT INFORMATION
  Report Type: 
  Country: None (occurrence: None)
  Receive Date: 20100630
  Receipt Date: 20100630
  Transmission Date: 20101027
  Serious: Yes (Disabling, Other)
  Sender: FDA-Public Use
  Company Number: None

PATIENT
  Age: 39 Year
  Sex: Female
  Weight: 54.4316 kg

DRUGS (3)
  1. LEVAQUIN [Suspect]
     Indication: PHARYNGITIS
     Dosage: 500 MG 1X/DAY ORAL
     Route: 048
     Dates: start: 20100326, end: 20100401
  2. LEVAQUIN [Suspect]
     Indication: TONSILLITIS
     Dosage: 500 MG 1X/DAY ORAL
     Route: 048
     Dates: start: 20100326, end: 20100401
  3. CLINDAMYCIN [Concomitant]

REACTIONS (7)
  - ARTHRALGIA [None]
  - GRIP STRENGTH DECREASED [None]
  - IMPAIRED WORK ABILITY [None]
  - LIMB INJURY [None]
  - MUSCULAR WEAKNESS [None]
  - MYALGIA [None]
  - SENSATION OF HEAVINESS [None]
